FAERS Safety Report 10964151 (Version 2)
Quarter: 2015Q2

REPORT INFORMATION
  Report Type: Spontaneous
  Country: US (occurrence: US)
  Receive Date: 20150329
  Receipt Date: 20150524
  Transmission Date: 20150821
  Serious: No
  Sender: FDA-Public Use
  Company Number: US-JNJFOC-20130800912

PATIENT
  Age: 64 Year
  Sex: Female
  Weight: 43.09 kg

DRUGS (5)
  1. DURAGESIC [Suspect]
     Active Substance: FENTANYL
     Indication: COMPLEX REGIONAL PAIN SYNDROME
     Route: 062
  2. DURAGESIC [Suspect]
     Active Substance: FENTANYL
     Indication: COMPLEX REGIONAL PAIN SYNDROME
     Route: 062
     Dates: start: 201307
  3. NEURONTIN [Concomitant]
     Active Substance: GABAPENTIN
     Indication: COMPLEX REGIONAL PAIN SYNDROME
     Route: 065
  4. FENTANYL. [Suspect]
     Active Substance: FENTANYL
     Indication: COMPLEX REGIONAL PAIN SYNDROME
     Route: 062
  5. DURAGESIC [Suspect]
     Active Substance: FENTANYL
     Indication: COMPLEX REGIONAL PAIN SYNDROME
     Route: 062

REACTIONS (3)
  - Reading disorder [Unknown]
  - Pain [Not Recovered/Not Resolved]
  - Bedridden [Unknown]

NARRATIVE: CASE EVENT DATE: 201307
